FAERS Safety Report 7829405-3 (Version None)
Quarter: 2011Q4

REPORT INFORMATION
  Report Type: 
  Country: None (occurrence: None)
  Receive Date: 20111020
  Receipt Date: 20111010
  Transmission Date: 20120403
  Serious: Yes (Hospitalization)
  Sender: FDA-Public Use
  Company Number: US-SANOFI-AVENTIS-2011SA067930

PATIENT
  Age: 64 Year
  Sex: Female

DRUGS (3)
  1. LANTUS [Suspect]
     Dosage: DOSE:12 UNIT(S)
     Route: 058
     Dates: start: 20110901
  2. PREDNISONE [Concomitant]
  3. ALL OTHER THERAPEUTIC PRODUCTS [Concomitant]

REACTIONS (8)
  - HOSPITALISATION [None]
  - SWELLING [None]
  - MENTAL DISORDER [None]
  - APHASIA [None]
  - HYPOGLYCAEMIA [None]
  - CONFUSIONAL STATE [None]
  - VISION BLURRED [None]
  - HYPOGLYCAEMIC SEIZURE [None]
